FAERS Safety Report 4900113-1 (Version None)
Quarter: 2006Q1

REPORT INFORMATION
  Report Type: 
  Country: None (occurrence: None)
  Receive Date: 20060201
  Receipt Date: 20060113
  Transmission Date: 20060701
  Serious: Yes (Other)
  Sender: FDA-Public Use
  Company Number: US20051100670

PATIENT
  Age: 63 Year
  Sex: 0

DRUGS (12)
  1. FORTEO [Suspect]
     Dosage: 20 UG DAILY (1/D) SUBCUTANEOUS
     Route: 058
     Dates: start: 20041001, end: 20051101
  2. EVISTA [Suspect]
     Dosage: 60 MG DAILY (1/D)
     Dates: start: 20030101, end: 20040101
  3. FORTEO PEN(FORTEO PEN) [Concomitant]
  4. NEXIUM [Concomitant]
  5. SYNTHROID [Concomitant]
  6. INDERAL [Concomitant]
  7. LIPITOR [Concomitant]
  8. AMBIEN [Concomitant]
  9. PAMELOR [Concomitant]
  10. CALCIUM CITRATE W/COLECALCIFEROL (CALCIUM CITRATE, COLECALCIFEROL) [Concomitant]
  11. CALCIUM CARBONATE (CALCIUM CARBONATE) [Concomitant]
  12. MULTIVITAMINS (ASCORBIC ACID, ERGOCALCIFEROL, FOLIC ACID, NICOTINAMIND [Concomitant]

REACTIONS (13)
  - ALPHA 2 GLOBULIN DECREASED [None]
  - ALPHA 2 GLOBULIN INCREASED [None]
  - BLOOD 25-HYDROXYCHOLECALCIFEROL DECREASED [None]
  - BLOOD ALBUMIN DECREASED [None]
  - BLOOD ALKALINE PHOSPHATASE INCREASED [None]
  - BONE DENSITY DECREASED [None]
  - DIARRHOEA [None]
  - HYPERCALCAEMIA [None]
  - HYPERCALCIURIA [None]
  - LABORATORY TEST ABNORMAL [None]
  - OSTEITIS DEFORMANS [None]
  - PHARMACEUTICAL PRODUCT COMPLAINT [None]
  - PROTEIN TOTAL INCREASED [None]
